FAERS Safety Report 5604920-1 (Version None)
Quarter: 2008Q1

REPORT INFORMATION
  Report Type: 
  Country: None (occurrence: None)
  Receive Date: 20080128
  Receipt Date: 20080107
  Transmission Date: 20080703
  Serious: No
  Sender: FDA-Public Use
  Company Number: US-BOEHRINGER INGELHEIM PHARMACEUTICALS, INC.-2008-BP-00378BP

PATIENT
  Age: 83 Year
  Sex: Male

DRUGS (5)
  1. FLOMAX [Suspect]
     Indication: PROSTATE CANCER
     Route: 048
     Dates: start: 20020101
  2. CASODEX [Concomitant]
  3. DIGOXIN [Concomitant]
  4. FUROSEMIDE [Concomitant]
  5. WARFARIN SODIUM [Concomitant]

REACTIONS (1)
  - NOCTURIA [None]
